FAERS Safety Report 5670445-0 (Version None)
Quarter: 2008Q1

REPORT INFORMATION
  Report Type: 
  Country: None (occurrence: None)
  Receive Date: 20080318
  Receipt Date: 20080303
  Transmission Date: 20080703
  Serious: Yes (Hospitalization)
  Sender: FDA-Public Use
  Company Number: DE-ELI_LILLY_AND_COMPANY-DE200802002330

PATIENT
  Sex: Female
  Weight: 64 kg

DRUGS (18)
  1. PLACEBO [Suspect]
     Indication: NON-SMALL CELL LUNG CANCER
     Dosage: 1125 MG, UNKNOWN
     Route: 065
     Dates: start: 20080109, end: 20080207
  2. PEMETREXED [Suspect]
     Indication: NON-SMALL CELL LUNG CANCER
     Dosage: 860 MG, UNKNOWN
     Route: 065
     Dates: start: 20080117
  3. PEMETREXED [Suspect]
     Dosage: 390 UNK, UNKNOWN
     Route: 065
  4. FOLIC ACID [Concomitant]
     Indication: PREMEDICATION
     Dosage: UNK, UNKNOWN
     Route: 065
     Dates: start: 20080103
  5. VITAMIN B-12 [Concomitant]
     Indication: PREMEDICATION
     Dosage: UNK, UNKNOWN
     Route: 065
     Dates: start: 20080103, end: 20080103
  6. DEXAMETHASONE TAB [Concomitant]
     Indication: PREMEDICATION
     Dosage: UNK, UNKNOWN
     Route: 065
     Dates: start: 20080116, end: 20080118
  7. ONDANSETRON [Concomitant]
     Indication: PROPHYLAXIS
     Dosage: UNK, UNKNOWN
     Route: 065
     Dates: start: 20080117
  8. OXAZEPAM [Concomitant]
     Indication: PROPHYLAXIS
     Dosage: UNK, UNKNOWN
     Route: 065
     Dates: start: 20071214
  9. SPIRIVA [Concomitant]
     Dosage: UNK, UNKNOWN
     Route: 065
     Dates: start: 20071214
  10. SULTANOL [Concomitant]
     Dosage: UNK, UNKNOWN
     Route: 065
     Dates: start: 20071218
  11. ATROVENT [Concomitant]
     Dosage: UNK, UNKNOWN
     Route: 065
     Dates: start: 20071218
  12. CAPVAL [Concomitant]
     Dosage: UNK, UNKNOWN
     Route: 065
     Dates: start: 20071214
  13. PARACODIN BITARTRATE TAB [Concomitant]
     Dosage: UNK, UNKNOWN
     Route: 065
     Dates: start: 20071219
  14. TRAMAL [Concomitant]
     Dosage: UNK, UNKNOWN
     Route: 065
     Dates: start: 20080103
  15. NOVAMINSULFON [Concomitant]
     Dosage: UNK, UNKNOWN
     Route: 065
     Dates: start: 20080103
  16. MORPHINE [Concomitant]
     Dosage: UNK, UNKNOWN
     Route: 065
     Dates: start: 20080207
  17. MOVICOL /01053601/ [Concomitant]
     Dosage: UNK, UNKNOWN
     Route: 065
     Dates: start: 20080207
  18. RIOPAN [Concomitant]
     Dosage: UNK, UNKNOWN
     Route: 065
     Dates: start: 20080207

REACTIONS (3)
  - ANAL ULCER [None]
  - MUCOSAL INFLAMMATION [None]
  - OESOPHAGITIS [None]
